FAERS Safety Report 11515818 (Version 1)
Quarter: 2015Q3

REPORT INFORMATION
  Report Type: Spontaneous
  Country: CA (occurrence: CA)
  Receive Date: 20150916
  Receipt Date: 20150916
  Transmission Date: 20151125
  Serious: Yes (Death)
  Sender: FDA-Public Use
  Company Number: CA-009507513-1509CAN007650

PATIENT
  Age: 62 Year
  Sex: Male

DRUGS (1)
  1. TEMODAL [Suspect]
     Active Substance: TEMOZOLOMIDE
     Indication: GLIOSARCOMA
     Dosage: 340 MG, QD X 5 DAYS
     Route: 048
     Dates: start: 20150323

REACTIONS (2)
  - Drug administration error [Unknown]
  - Death [Fatal]

NARRATIVE: CASE EVENT DATE: 20150323
